FAERS Safety Report 8771746 (Version 9)
Quarter: 2014Q2

REPORT INFORMATION
  Report Type: Spontaneous
  Country: US (occurrence: US)
  Receive Date: 20120905
  Receipt Date: 20140624
  Transmission Date: 20141212
  Serious: Yes (Other)
  Sender: FDA-Public Use
  Company Number: US-PFIZER INC-2012210106

PATIENT
  Age: 29 Year
  Sex: Female

DRUGS (26)
  1. VISTARIL [Suspect]
     Indication: AFFECTIVE DISORDER
     Dosage: 25 MG, 3X/DAY
     Route: 048
     Dates: start: 20061111
  2. VISTARIL [Suspect]
     Indication: ANXIETY
  3. TOPAMAX [Suspect]
     Indication: MIGRAINE
     Dosage: 100 MG TO 300 MG DAILY
     Dates: start: 200509, end: 200902
  4. TOPAMAX [Suspect]
     Indication: CONVULSION
  5. TRAZODONE [Suspect]
     Indication: DEPRESSION
     Dosage: 100 MG AND 50 MG
     Route: 048
     Dates: start: 20051015
  6. TRAZODONE [Suspect]
     Dosage: 100 MG AND 50 MG
     Dates: start: 20051129
  7. TRAZODONE [Suspect]
     Dosage: 100 MG AND 50 MG
     Dates: start: 20060102
  8. TRAZODONE [Suspect]
     Dosage: 100 MG AND 50 MG
     Dates: start: 20070823
  9. TRAZODONE [Suspect]
     Dosage: 100 MG AND 50 MG
     Dates: start: 20070927
  10. MIRTAZAPINE [Suspect]
     Indication: DEPRESSION
     Dosage: UNK
     Route: 048
     Dates: start: 20060531
  11. MIRTAZAPINE [Suspect]
     Dosage: UNK
     Dates: start: 20060722
  12. MIRTAZAPINE [Suspect]
     Dosage: UNK
     Dates: start: 20060904
  13. METFORMIN [Suspect]
     Indication: TYPE 2 DIABETES MELLITUS
     Dosage: 500 MG, UNK
     Route: 048
  14. COLACE [Suspect]
     Dosage: UNK
     Route: 065
  15. OXYTOCIN [Suspect]
     Route: 042
  16. BRETHINE [Suspect]
     Route: 058
  17. BUPIVACAINE [Suspect]
     Dosage: UNK
     Route: 008
  18. FENTANYL CITRATE [Suspect]
     Route: 008
  19. OPTINATE [Concomitant]
     Indication: VITAMIN SUPPLEMENTATION
     Dosage: UNK
     Route: 065
     Dates: start: 200611, end: 200706
  20. FOLIC ACID [Concomitant]
     Indication: VITAMIN SUPPLEMENTATION
     Dosage: UNK
     Route: 065
     Dates: start: 200610, end: 2007
  21. PRENATAL VITAMINS [Concomitant]
     Route: 048
  22. FERROUS SULFATE [Concomitant]
     Route: 065
  23. IBUPROFEN [Suspect]
     Dosage: 800 MG, 3X/DAY
     Route: 065
  24. ZOLOFT [Suspect]
     Indication: DEPRESSION
     Dosage: 100
     Route: 048
     Dates: start: 2006, end: 2010
  25. ZOLOFT [Suspect]
     Indication: ILL-DEFINED DISORDER
  26. EFFEXOR [Suspect]
     Indication: AFFECTIVE DISORDER
     Dosage: UNK
     Route: 048

REACTIONS (4)
  - Oligohydramnios [Unknown]
  - Epilepsy [Unknown]
  - Perineal injury [Unknown]
  - Emotional disorder [Unknown]
